FAERS Safety Report 9215337 (Version 4)
Quarter: 2013Q2

REPORT INFORMATION
  Report Type: Report from Study
  Country: US (occurrence: US)
  Receive Date: 20130405
  Receipt Date: 20130429
  Transmission Date: 20140414
  Serious: Yes (Other)
  Sender: FDA-Public Use
  Company Number: US-US-EMD SERONO, INC.-7202868

PATIENT
  Age: 68 Year
  Sex: Female

DRUGS (13)
  1. REBIF [Suspect]
     Indication: MULTIPLE SCLEROSIS
     Route: 058
     Dates: start: 20121120
  2. ALEVE /00256202/ [Suspect]
     Indication: PREMEDICATION
  3. ALEVE /00256202/ [Suspect]
     Indication: INFLUENZA LIKE ILLNESS
  4. OMEPRAZOLE [Concomitant]
     Indication: GASTROOESOPHAGEAL REFLUX DISEASE
     Dates: start: 201303
  5. ASPIRIN                            /00002701/ [Concomitant]
     Indication: PROPHYLAXIS
     Dates: end: 201303
  6. MICARDIS HCT [Concomitant]
     Indication: HYPERTENSION
  7. SYNTHROID [Concomitant]
     Indication: THYROID CANCER
  8. VYTORIN [Concomitant]
     Indication: BLOOD CHOLESTEROL INCREASED
  9. GABAPENTIN [Concomitant]
     Indication: HYPOAESTHESIA
  10. FLUTICASONE                        /00972202/ [Concomitant]
     Indication: NASAL CONGESTION
  11. ZOLPIDEM [Concomitant]
     Indication: INSOMNIA
  12. ADVAIR [Concomitant]
     Indication: SINUS CONGESTION
  13. SINGULAIR                          /01362601/ [Concomitant]
     Indication: SINUS CONGESTION

REACTIONS (8)
  - Gastric ulcer haemorrhage [Recovering/Resolving]
  - Sinusitis [Unknown]
  - Dry mouth [Unknown]
  - Abdominal pain upper [Unknown]
  - Muscle spasms [Unknown]
  - Anaemia [Unknown]
  - Injection site pain [Not Recovered/Not Resolved]
  - Influenza like illness [Unknown]
